FAERS Safety Report 8328066-7 (Version None)
Quarter: 2012Q2

REPORT INFORMATION
  Report Type: 
  Country: None (occurrence: None)
  Receive Date: 20120502
  Receipt Date: 20120427
  Transmission Date: 20120825
  Serious: No
  Sender: FDA-Public Use
  Company Number: PHEH2011US010263

PATIENT
  Sex: Male
  Weight: 76.19 kg

DRUGS (9)
  1. SPIRIVA [Concomitant]
  2. TASIGNA [Suspect]
     Dosage: 2 DF, Q12H
     Route: 048
  3. FUROSEMIDE [Concomitant]
     Dosage: 20 MG, UNK
  4. ASPIRIN [Concomitant]
  5. OMEPRAZOLE [Concomitant]
     Dosage: 10 MG, UNK
  6. POTASSIUM CHLORIDE [Concomitant]
     Dosage: 25 MEQ, UNK
  7. VALSTAR PRESERVATIVE FREE [Concomitant]
  8. METOPROLOL TARTRATE [Concomitant]
  9. ADVAIR DISKUS 100/50 [Concomitant]

REACTIONS (2)
  - FATIGUE [None]
  - RASH ERYTHEMATOUS [None]
